FAERS Safety Report 8788505 (Version 1)
Quarter: 2012Q4

REPORT INFORMATION
  Report Type: 
  Country: US (occurrence: US)
  Receive Date: 20120914
  Receipt Date: 20120914
  Transmission Date: 20130627
  Serious: No
  Sender: FDA-Public Use
  Company Number: US-VERTEX PHARMACEUTICAL INC.-AE-2012-010860

PATIENT
  Age: 50 Year
  Sex: Male
  Weight: 77 kg

DRUGS (6)
  1. VX-950 [Suspect]
     Indication: HEPATITIS C
     Dosage: 750 mg, tid
     Route: 048
     Dates: start: 20120630
  2. PEGASYS [Concomitant]
     Indication: HEPATITIS C
     Dosage: 180 ?g, UNK
     Dates: start: 20120630
  3. RIBAPAK [Concomitant]
     Indication: HEPATITIS C
     Dosage: 1000 mg, UNK
     Dates: start: 20120630
  4. DIOVAN [Concomitant]
  5. HYDROCORTISONE CREAM [Concomitant]
  6. HYDROXYZINE HCL [Concomitant]

REACTIONS (5)
  - Incorrect drug administration duration [Recovered/Resolved]
  - Influenza like illness [Recovered/Resolved]
  - Rash pustular [Recovered/Resolved]
  - Anaemia [Unknown]
  - Nausea [Recovered/Resolved]
